FAERS Safety Report 24670000 (Version 1)
Quarter: 2024Q4

REPORT INFORMATION
  Report Type: Spontaneous
  Country: GB (occurrence: GB)
  Receive Date: 20241127
  Receipt Date: 20241127
  Transmission Date: 20250114
  Serious: Yes (Hospitalization, Other)
  Sender: ACCORD
  Company Number: None

PATIENT
  Age: 53 Year
  Sex: Male

DRUGS (7)
  1. ARIPIPRAZOLE [Suspect]
     Active Substance: ARIPIPRAZOLE
     Indication: Hallucination, auditory
     Dosage: STRENGTH: 10MG
  2. PROMETHAZINE HYDROCHLORIDE [Concomitant]
     Active Substance: PROMETHAZINE HYDROCHLORIDE
  3. ATORVASTATIN [Concomitant]
     Active Substance: ATORVASTATIN
  4. SULPIRIDE [Concomitant]
     Active Substance: SULPIRIDE
  5. PROCYCLIDINE [Concomitant]
     Active Substance: PROCYCLIDINE
  6. PAROXETINE [Concomitant]
     Active Substance: PAROXETINE
  7. TOLTERODINE TARTRATE [Concomitant]
     Active Substance: TOLTERODINE TARTRATE

REACTIONS (4)
  - Orthostatic hypotension [Recovered/Resolved]
  - Palpitations [Unknown]
  - Chest discomfort [Unknown]
  - Dizziness [Unknown]
